FAERS Safety Report 4337232-7 (Version None)
Quarter: 2004Q2

REPORT INFORMATION
  Report Type: 
  Country: None (occurrence: None)
  Receive Date: 20040408
  Receipt Date: 20040329
  Transmission Date: 20050107
  Serious: Yes (Other)
  Sender: FDA-Public Use
  Company Number: IT-SHR-03-015469

PATIENT
  Age: 29 Year
  Sex: Female

DRUGS (1)
  1. YASMIN [Suspect]
     Indication: ORAL CONTRACEPTION
     Dosage: 1 TAB(S), 21 D/28D, ORAL
     Route: 048
     Dates: start: 20030601, end: 20030728

REACTIONS (4)
  - FACIAL NERVE DISORDER [None]
  - HEARING IMPAIRED [None]
  - NEURITIS CRANIAL [None]
  - PARAESTHESIA [None]
